FAERS Safety Report 7414935-9 (Version None)
Quarter: 2011Q2

REPORT INFORMATION
  Report Type: 
  Country: None (occurrence: None)
  Receive Date: 20110414
  Receipt Date: 20110225
  Transmission Date: 20111010
  Serious: Yes (Other)
  Sender: FDA-Public Use
  Company Number: US-BAYER-201036369NA

PATIENT
  Age: 15 Year
  Sex: Female
  Weight: 72.562 kg

DRUGS (10)
  1. NSAID'S [Concomitant]
  2. ZOFRAN [Concomitant]
     Dosage: UNK
     Dates: start: 20050605
  3. YAZ [Suspect]
     Indication: PRODUCT USED FOR UNKNOWN INDICATION
     Dosage: UNK
     Route: 048
     Dates: start: 20040101, end: 20070101
  4. ROBINOL [Concomitant]
     Dosage: UNK
     Dates: start: 20050605
  5. DARVOCET [Concomitant]
     Dosage: UNK
     Dates: start: 20050101
  6. VICOPROFEN [Concomitant]
     Dosage: UNK
     Dates: start: 20050101
  7. REGLAN [Concomitant]
     Dosage: UNK
     Dates: start: 20050605
  8. YASMIN [Suspect]
     Indication: PRODUCT USED FOR UNKNOWN INDICATION
     Dosage: UNK
     Route: 048
     Dates: start: 20040101, end: 20070101
  9. MORPHINE [Concomitant]
     Dosage: UNK
     Dates: start: 20050605
  10. VERSED [Concomitant]
     Dosage: UNK
     Dates: start: 20050605

REACTIONS (1)
  - THROMBOSIS [None]
